FAERS Safety Report 22209615 (Version 1)
Quarter: 2023Q2

REPORT INFORMATION
  Report Type: Spontaneous
  Country: US (occurrence: US)
  Receive Date: 20230414
  Receipt Date: 20230414
  Transmission Date: 20230722
  Serious: Yes (Other)
  Sender: FDA-Public Use
  Company Number: US-Axellia-004213

PATIENT
  Age: 28 Year
  Sex: Female
  Weight: 77.1 kg

DRUGS (1)
  1. VANCOMYCIN [Suspect]
     Active Substance: VANCOMYCIN
     Indication: Subcutaneous abscess
     Dosage: 1250MG X3 DOSES
     Route: 042
     Dates: start: 20220120, end: 20220121

REACTIONS (1)
  - Exposure during pregnancy [Unknown]
